FAERS Safety Report 9319969 (Version 3)
Quarter: 2014Q1

REPORT INFORMATION
  Report Type: Spontaneous
  Country: JP (occurrence: JP)
  Receive Date: 20130530
  Receipt Date: 20140217
  Transmission Date: 20141002
  Serious: Yes (Other)
  Sender: FDA-Public Use
  Company Number: JP-OTSUKA-JP-2013-11848

PATIENT
  Age: 35 Year
  Sex: Female

DRUGS (5)
  1. PLETAAL [Suspect]
     Dosage: 200 MG MILLIGRAM(S), DAILY DOSE
     Route: 048
     Dates: start: 200709
  2. PREDNISOLONE [Concomitant]
     Dosage: 20 MG MILLIGRAM(S), DAILY DOSE
     Route: 065
     Dates: start: 200506
  3. PREDNISOLONE [Concomitant]
     Dosage: 8 MG MILLIGRAM(S), DAILY DOSE
     Route: 065
  4. ALPROSTADIL [Concomitant]
     Dosage: 10 MCG, DAILY DOSE
     Route: 042
  5. ASPIRIN [Concomitant]
     Dosage: 100 MG MILLIGRAM(S), DAILY DOSE
     Route: 065
     Dates: start: 201002

REACTIONS (2)
  - Mononeuropathy multiplex [Unknown]
  - Rash [Unknown]
